FAERS Safety Report 6481647-8 (Version None)
Quarter: 2009Q4

REPORT INFORMATION
  Report Type: 
  Country: None (occurrence: None)
  Receive Date: 20091208
  Receipt Date: 20091130
  Transmission Date: 20100525
  Serious: Yes (Hospitalization)
  Sender: FDA-Public Use
  Company Number: US-ELI_LILLY_AND_COMPANY-US200912000354

PATIENT
  Sex: Female

DRUGS (3)
  1. EVISTA [Suspect]
     Indication: BONE DISORDER
     Dosage: 60 MG, DAILY (1/D)
     Route: 065
     Dates: start: 20081101, end: 20091014
  2. CALCITONIN-SALMON [Concomitant]
     Dosage: UNK, UNKNOWN
     Route: 055
  3. VITAMINS [Concomitant]
     Dosage: UNK, UNKNOWN
     Route: 065

REACTIONS (2)
  - ALOPECIA [None]
  - RECTAL PROLAPSE [None]
